FAERS Safety Report 21231160 (Version 3)
Quarter: 2024Q3

REPORT INFORMATION
  Report Type: Spontaneous
  Country: AU (occurrence: AU)
  Receive Date: 20220819
  Receipt Date: 20240717
  Transmission Date: 20241016
  Serious: Yes (Other)
  Sender: ROCHE
  Company Number: AU-ROCHE-3162369

PATIENT
  Age: 77 Year
  Sex: Male
  Weight: 85.0 kg

DRUGS (18)
  1. RITUXIMAB [Suspect]
     Active Substance: RITUXIMAB
     Indication: Follicular lymphoma
     Dosage: 1ST SYSTEMIC TREATMENT (R-CHOP), COMPLETE REMISSION
     Route: 065
     Dates: start: 20120601, end: 20121101
  2. RITUXIMAB [Suspect]
     Active Substance: RITUXIMAB
     Dosage: 3RD SYSTEMIC TREATMENT, RITUXIMAB MONOTHERAPY WEEKLY, PROGRESSIVE DISEASE
     Route: 065
     Dates: start: 20220601, end: 20220701
  3. RITUXIMAB [Suspect]
     Active Substance: RITUXIMAB
     Dosage: 4RD SYSTEMIC TREATMENT, RITUXIMAB MONOTHERAPY WEEKLY, PROGRESSIVE DISEASE
     Route: 065
     Dates: start: 20220810, end: 20220927
  4. GAZYVA [Suspect]
     Active Substance: OBINUTUZUMAB
     Indication: Follicular lymphoma
     Dosage: 2ND SYSTEMIC TREATMENT (BENDAMUSTINE + OBINUTUZUMAB), COMPLETE REMISSION
     Route: 042
     Dates: start: 20190701, end: 20191201
  5. MOSUNETUZUMAB [Suspect]
     Active Substance: MOSUNETUZUMAB
     Indication: Follicular lymphoma
     Route: 065
     Dates: start: 20221010, end: 20230324
  6. CYCLOPHOSPHAMIDE [Suspect]
     Active Substance: CYCLOPHOSPHAMIDE
     Indication: Follicular lymphoma
     Dosage: 1ST SYSTEMIC TREATMENT (R-CHOP), COMPLETE REMISSION
     Route: 065
     Dates: start: 20120601, end: 20121101
  7. CYCLOPHOSPHAMIDE [Suspect]
     Active Substance: CYCLOPHOSPHAMIDE
     Dosage: 4TH SYSTEMIC TREATMENT (R-CHOP), PARTIAL RESPONSE
     Route: 065
     Dates: start: 20220810, end: 20220927
  8. DOXORUBICIN HYDROCHLORIDE [Suspect]
     Active Substance: DOXORUBICIN HYDROCHLORIDE
     Indication: Follicular lymphoma
     Dosage: 1ST SYSTEMIC TREATMENT (R-CHOP), COMPLETE REMISSION
     Route: 065
     Dates: start: 20120601, end: 20121101
  9. DOXORUBICIN HYDROCHLORIDE [Suspect]
     Active Substance: DOXORUBICIN HYDROCHLORIDE
     Dosage: 4TH SYSTEMATIC TREATMENT OF R-MINI CHOP OF PARTIAL RESPONSE
     Route: 065
     Dates: start: 20220810, end: 20220927
  10. VINCRISTINE [Suspect]
     Active Substance: VINCRISTINE
     Indication: Follicular lymphoma
     Dosage: 1ST SYSTEMIC TREATMENT (R-CHOP), COMPLETE REMISSION
     Route: 065
     Dates: start: 20120601, end: 20121101
  11. VINCRISTINE [Suspect]
     Active Substance: VINCRISTINE
     Dosage: 4TH SYSTEMIC TREATMENT (R-CHOP), PARTIAL RESPONSE
     Route: 065
     Dates: start: 20220810, end: 20220927
  12. PREDNISONE [Suspect]
     Active Substance: PREDNISONE
     Indication: Follicular lymphoma
     Dosage: 1ST SYSTEMIC TREATMENT (R-CHOP), COMPLETE REMISSION
     Route: 065
     Dates: start: 20120601, end: 20121101
  13. PREDNISONE [Suspect]
     Active Substance: PREDNISONE
     Dosage: 4TH SYSTEMIC TREATMENT (R-CHOP), PARTIAL RESPONSE
     Route: 065
     Dates: start: 20220810, end: 20220927
  14. BENDAMUSTINE [Suspect]
     Active Substance: BENDAMUSTINE
     Indication: Follicular lymphoma
     Dosage: 2ND SYSTEMIC TREATMENT (BENDAMUSTINE + OBINUTUZUMAB), COMPLETE REMISSION
     Route: 065
     Dates: start: 20190701, end: 20191201
  15. LEVOTHYROXINE [Concomitant]
     Active Substance: LEVOTHYROXINE\LEVOTHYROXINE SODIUM
  16. VITAMIN D NOS [Concomitant]
     Active Substance: CHOLECALCIFEROL\ERGOCALCIFEROL
     Dosage: VIT D 2000 DAILY
  17. DEXAMETHASONE [Concomitant]
     Active Substance: DEXAMETHASONE
  18. VALACYCLOVIR HYDROCHLORIDE [Concomitant]
     Active Substance: VALACYCLOVIR HYDROCHLORIDE

REACTIONS (1)
  - Disease progression [Unknown]
